FAERS Safety Report 13501736 (Version 2)
Quarter: 2017Q2

REPORT INFORMATION
  Report Type: Spontaneous
  Country: TW (occurrence: TW)
  Receive Date: 20170502
  Receipt Date: 20170518
  Transmission Date: 20170830
  Serious: Yes (Hospitalization, Other)
  Sender: FDA-Public Use
  Company Number: TW-ROCHE-1924525

PATIENT
  Age: 74 Year
  Sex: Male
  Weight: 54.3 kg

DRUGS (5)
  1. IRINOTECAN HCL [Concomitant]
     Active Substance: IRINOTECAN HYDROCHLORIDE
     Indication: COLORECTAL CANCER
     Dosage: 290 MG IN NS 500 ML
     Route: 042
     Dates: start: 20160603
  2. FLUOROURACIL. [Concomitant]
     Active Substance: FLUOROURACIL
     Indication: COLORECTAL CANCER
     Route: 042
     Dates: start: 20160603
  3. OXALIPLATIN. [Concomitant]
     Active Substance: OXALIPLATIN
     Indication: COLORECTAL CANCER
     Dosage: 140 MG IN D5W 500 ML
     Route: 042
     Dates: start: 20160603
  4. LEUCOVORIN CALCIUM. [Concomitant]
     Active Substance: LEUCOVORIN CALCIUM
     Indication: COLORECTAL CANCER
     Route: 042
     Dates: start: 20160603
  5. AVASTIN [Suspect]
     Active Substance: BEVACIZUMAB
     Indication: COLORECTAL CANCER
     Dosage: 100 MG/VIAL?300 MG IN NS 250 ML
     Route: 042
     Dates: start: 20160603

REACTIONS (12)
  - Blood glucose decreased [Unknown]
  - Cerebral atrophy [Unknown]
  - Stupor [Not Recovered/Not Resolved]
  - Gastroenteritis [Unknown]
  - White matter lesion [Unknown]
  - Nausea [Recovered/Resolved]
  - Anaemia [Unknown]
  - Vomiting [Recovered/Resolved]
  - Bradycardia [Unknown]
  - Diarrhoea [Recovered/Resolved]
  - Abdominal pain lower [Unknown]
  - Febrile neutropenia [Unknown]

NARRATIVE: CASE EVENT DATE: 20170410
